FAERS Safety Report 8936692 (Version 1)
Quarter: 2012Q4

REPORT INFORMATION
  Report Type: 
  Country: US (occurrence: US)
  Receive Date: 20121130
  Receipt Date: 20121130
  Transmission Date: 20130627
  Serious: No
  Sender: FDA-Public Use
  Company Number: US-ASTRAZENECA-2012SE87611

PATIENT
  Age: 53 Year
  Sex: Female
  Weight: 62.6 kg

DRUGS (6)
  1. SEROQUEL [Suspect]
     Indication: BIPOLAR I DISORDER
     Route: 048
     Dates: start: 2004
  2. CYMBALTA [Concomitant]
     Dates: start: 2002
  3. FLEXERIL [Concomitant]
     Dates: start: 2006
  4. XANAX [Concomitant]
     Dates: start: 2010
  5. MELOXICAM [Concomitant]
     Dates: start: 2006
  6. OXYCODONE [Concomitant]
     Dates: start: 201204

REACTIONS (7)
  - Pain in extremity [Not Recovered/Not Resolved]
  - Burning sensation [Not Recovered/Not Resolved]
  - Sciatica [Not Recovered/Not Resolved]
  - Adverse event [Unknown]
  - Eyelid ptosis [Not Recovered/Not Resolved]
  - Muscle spasms [Not Recovered/Not Resolved]
  - Intentional drug misuse [Unknown]
